FAERS Safety Report 12742545 (Version 1)
Quarter: 2016Q3

REPORT INFORMATION
  Report Type: Spontaneous
  Country: CN (occurrence: CN)
  Receive Date: 20160914
  Receipt Date: 20160914
  Transmission Date: 20161109
  Serious: Yes (Other)
  Sender: FDA-Public Use
  Company Number: CN-BAYER-2016-178457

PATIENT
  Age: 93 Year
  Sex: Male

DRUGS (3)
  1. GLUCOBAY [Suspect]
     Active Substance: ACARBOSE
     Indication: PRODUCT USED FOR UNKNOWN INDICATION
     Dosage: 1 DF, UNK
  2. GLUCOBAY [Suspect]
     Active Substance: ACARBOSE
     Indication: PRODUCT USED FOR UNKNOWN INDICATION
     Dosage: 2 DF, UNK
  3. INSULIN [Concomitant]
     Active Substance: INSULIN NOS
     Dosage: UNK

REACTIONS (4)
  - Blood creatine abnormal [None]
  - Faeces hard [None]
  - Renal impairment [None]
  - Decreased appetite [None]
